FAERS Safety Report 5486002-5 (Version None)
Quarter: 2007Q4

REPORT INFORMATION
  Report Type: 
  Country: None (occurrence: None)
  Receive Date: 20071015
  Receipt Date: 20071001
  Transmission Date: 20080405
  Serious: Yes (Hospitalization)
  Sender: FDA-Public Use
  Company Number: CH-GENENTECH-225873

PATIENT
  Age: 34 Year
  Sex: Female

DRUGS (3)
  1. RAPTIVA [Suspect]
     Indication: PSORIASIS
     Dosage: 1 MG/KG, 1/WEEK
     Route: 058
     Dates: start: 20041101, end: 20060526
  2. CICLOSPORIN [Concomitant]
     Indication: PSORIASIS
     Dosage: 150 MG, BID
     Dates: start: 20041101, end: 20060522
  3. METHOTREXATE [Concomitant]
     Indication: PSORIASIS
     Dosage: 2.857 MG, 1/WEEK
     Route: 048
     Dates: start: 20041101

REACTIONS (2)
  - MENINGITIS CRYPTOCOCCAL [None]
  - SKIN LESION [None]
